FAERS Safety Report 13896879 (Version 1)
Quarter: 2017Q3

REPORT INFORMATION
  Report Type: Spontaneous
  Country: AU (occurrence: AU)
  Receive Date: 20170823
  Receipt Date: 20170823
  Transmission Date: 20171127
  Serious: Yes (Hospitalization, Other)
  Sender: FDA-Public Use
  Company Number: PHHY2017AU118754

PATIENT
  Age: 31 Year
  Sex: Male

DRUGS (2)
  1. SANDOSTATIN [Suspect]
     Active Substance: OCTREOTIDE ACETATE
     Indication: ACROMEGALY
     Dosage: 30 MG, QMO (ONCE A MONTH)
     Route: 065
  2. PEGVISOMANT [Concomitant]
     Active Substance: PEGVISOMANT
     Indication: PRODUCT USED FOR UNKNOWN INDICATION
     Dosage: UNK
     Route: 065

REACTIONS (18)
  - Monoplegia [Unknown]
  - Weight increased [Unknown]
  - Coma [Unknown]
  - Soft tissue disorder [Unknown]
  - Hormone level abnormal [Unknown]
  - Traumatic intracranial haemorrhage [Unknown]
  - Brain injury [Unknown]
  - Fatigue [Unknown]
  - Hypopituitarism [Unknown]
  - Neuralgia [Unknown]
  - Weight decreased [Unknown]
  - Diabetes mellitus [Unknown]
  - Intracranial aneurysm [Unknown]
  - Nerve injury [Unknown]
  - Decreased immune responsiveness [Unknown]
  - Injection site mass [Unknown]
  - Diplegia [Unknown]
  - Paranoia [Unknown]
